FAERS Safety Report 19721352 (Version 3)
Quarter: 2021Q4

REPORT INFORMATION
  Report Type: Report from Study
  Country: IL (occurrence: IL)
  Receive Date: 20210818
  Receipt Date: 20211119
  Transmission Date: 20220303
  Serious: Yes (Death)
  Sender: FDA-Public Use
  Company Number: IL-KARYOPHARM-2021KPT001039

PATIENT
  Age: 30 Year
  Sex: Female

DRUGS (1)
  1. SELINEXOR [Suspect]
     Active Substance: SELINEXOR
     Indication: Haemangiopericytoma of meninges
     Dosage: 40 MG, 2X/WEEK
     Route: 048
     Dates: start: 20210701

REACTIONS (2)
  - Pneumonia [Fatal]
  - Nausea [Unknown]

NARRATIVE: CASE EVENT DATE: 20210101
